FAERS Safety Report 7280632-6 (Version None)
Quarter: 2011Q1

REPORT INFORMATION
  Report Type: 
  Country: None (occurrence: None)
  Receive Date: 20110208
  Receipt Date: 20110204
  Transmission Date: 20110831
  Serious: Yes (Hospitalization)
  Sender: FDA-Public Use
  Company Number: A0770491A

PATIENT
  Age: 57 Year
  Sex: Female
  Weight: 113.6 kg

DRUGS (11)
  1. LABETALOL HCL [Concomitant]
  2. NAPROXEN [Concomitant]
  3. AVANDIA [Suspect]
     Indication: DIABETES MELLITUS
     Dosage: 4MG TWICE PER DAY
     Route: 048
     Dates: start: 20040801
  4. CALCIUM + MAGNESIUM [Concomitant]
  5. NORMODYNE [Concomitant]
  6. AVANDARYL [Suspect]
     Indication: DIABETES MELLITUS
     Route: 048
     Dates: start: 20061207, end: 20070101
  7. GLYBURIDE [Concomitant]
  8. DIABETA [Concomitant]
  9. AVANDAMET [Suspect]
     Indication: DIABETES MELLITUS
     Route: 048
  10. METFORMIN [Concomitant]
  11. BENICAR [Concomitant]

REACTIONS (5)
  - CARDIAC FAILURE CONGESTIVE [None]
  - CARDIAC DISORDER [None]
  - CORONARY ARTERY DISEASE [None]
  - ARRHYTHMIA [None]
  - MITRAL VALVE INCOMPETENCE [None]
